FAERS Safety Report 5092559-9 (Version None)
Quarter: 2006Q3

REPORT INFORMATION
  Report Type: 
  Country: None (occurrence: None)
  Receive Date: 20060828
  Receipt Date: 20060816
  Transmission Date: 20061208
  Serious: Yes (Other)
  Sender: FDA-Public Use
  Company Number: 2006099852

PATIENT
  Age: 82 Year
  Sex: Female

DRUGS (12)
  1. NORVASC [Suspect]
     Indication: HYPERTENSION
     Dosage: 5 MG (5 MG, 1 IN 1 D), ORAL
     Route: 048
     Dates: start: 20050622
  2. DETROL LA [Concomitant]
  3. BUSPAR [Concomitant]
  4. ZOLOFT [Concomitant]
  5. HYDROCHLOROTHIAZIDE [Concomitant]
  6. FOLIC ACID [Concomitant]
  7. DIOVAN [Concomitant]
  8. TIZANIDINE HCL [Concomitant]
  9. TRILEPTAL [Concomitant]
  10. REQUIP [Concomitant]
  11. PROTONIX [Concomitant]
  12. SPIRONOLACTONE [Concomitant]

REACTIONS (1)
  - RESTLESS LEGS SYNDROME [None]
